FAERS Safety Report 4280506-9 (Version None)
Quarter: 2004Q1

REPORT INFORMATION
  Report Type: 
  Country: None (occurrence: None)
  Receive Date: 20040127
  Receipt Date: 20040115
  Transmission Date: 20041129
  Serious: Yes (Hospitalization)
  Sender: FDA-Public Use
  Company Number: 04P-062-0247369-00

PATIENT
  Age: 31 Year
  Sex: Female

DRUGS (6)
  1. NORVIR [Suspect]
     Indication: HIV INFECTION
     Dosage: 100 MG, 1 IN 1 D, PER ORAL
     Route: 048
     Dates: start: 20031201
  2. INDINAVIR SULFATE [Concomitant]
  3. ZIDOVUDINE W/LAMIVUDINE [Concomitant]
  4. PANTOPRAZOLE [Concomitant]
  5. FOLIC ACID [Concomitant]
  6. SULTAMICILLIN TOSILATE [Concomitant]

REACTIONS (1)
  - LOBAR PNEUMONIA [None]
